FAERS Safety Report 4975625-5 (Version None)
Quarter: 2006Q2

REPORT INFORMATION
  Report Type: 
  Country: None (occurrence: None)
  Receive Date: 20060411
  Receipt Date: 20060323
  Transmission Date: 20061013
  Serious: Yes (Other)
  Sender: FDA-Public Use
  Company Number: US200603006659

PATIENT
  Sex: Female

DRUGS (1)
  1. EVISTA [Suspect]
     Dosage: 60 MG, ORAL
     Route: 048
     Dates: start: 19990301, end: 20060204

REACTIONS (3)
  - ENDOMETRIAL HYPERPLASIA [None]
  - MENORRHAGIA [None]
  - UTERINE CANCER [None]
